FAERS Safety Report 5069954-7 (Version None)
Quarter: 2006Q3

REPORT INFORMATION
  Report Type: 
  Country: None (occurrence: None)
  Receive Date: 20060731
  Receipt Date: 20060721
  Transmission Date: 20061208
  Serious: Yes (Hospitalization)
  Sender: FDA-Public Use
  Company Number: 2006P1000346

PATIENT
  Age: 60 Year
  Sex: Male
  Weight: 100 kg

DRUGS (9)
  1. RETEPLASE (RETEPLASE) [Suspect]
     Indication: ACUTE MYOCARDIAL INFARCTION
     Dosage: IV
     Route: 042
     Dates: start: 20060327
  2. REOPRO [Suspect]
     Indication: ACUTE MYOCARDIAL INFARCTION
     Dosage: IV
     Route: 042
     Dates: start: 20060327, end: 20060327
  3. ACETYLSALICYLIC ACID SRT [Concomitant]
  4. CLOPIDOGREL [Concomitant]
  5. SIMVASTATIN [Concomitant]
  6. METFORMIN [Concomitant]
  7. ISMO [Concomitant]
  8. PERINDOPRIL ERBUMINE [Concomitant]
  9. ACETYLSALICYLATE CALCIUM [Concomitant]

REACTIONS (1)
  - CORONARY ARTERY DISEASE [None]
